FAERS Safety Report 9846786 (Version 4)
Quarter: 2014Q1

REPORT INFORMATION
  Report Type: Spontaneous
  Country: JP (occurrence: JP)
  Receive Date: 20140127
  Receipt Date: 20140314
  Transmission Date: 20141002
  Serious: Yes (Other)
  Sender: FDA-Public Use
  Company Number: JP-JNJFOC-20140115348

PATIENT
  Age: 39 Year
  Sex: Female
  Weight: 59 kg

DRUGS (7)
  1. SOVRIAD [Suspect]
     Indication: CHRONIC HEPATITIS C
     Route: 048
     Dates: start: 20140109
  2. PEGASYS [Suspect]
     Indication: CHRONIC HEPATITIS C
     Route: 058
     Dates: start: 20140130
  3. PEGASYS [Suspect]
     Indication: CHRONIC HEPATITIS C
     Route: 058
     Dates: start: 20140109, end: 20140109
  4. PEGASYS [Suspect]
     Indication: CHRONIC HEPATITIS C
     Route: 058
     Dates: start: 20140123, end: 20140123
  5. PEGASYS [Suspect]
     Indication: CHRONIC HEPATITIS C
     Route: 058
     Dates: start: 20140116, end: 20140116
  6. COPEGUS [Concomitant]
     Indication: CHRONIC HEPATITIS C
     Route: 048
     Dates: start: 20140109
  7. FERROMIA [Concomitant]
     Indication: ANAEMIA
     Route: 048
     Dates: start: 20140109

REACTIONS (1)
  - Neutrophil count decreased [Recovering/Resolving]
